FAERS Safety Report 15709178 (Version 2)
Quarter: 2019Q2

REPORT INFORMATION
  Report Type: Spontaneous
  Country: CA (occurrence: CA)
  Receive Date: 20181211
  Receipt Date: 20190606
  Transmission Date: 20190711
  Serious: Yes (Other)
  Sender: FDA-Public Use
  Company Number: CA-SA-2017SA074282

PATIENT
  Age: 51 Year
  Sex: Female

DRUGS (21)
  1. DOCETAXEL. [Suspect]
     Active Substance: DOCETAXEL
     Indication: HER-2 POSITIVE BREAST CANCER
     Dosage: SOLUTION INTRAVENOUS
     Route: 042
  2. DOCETAXEL. [Suspect]
     Active Substance: DOCETAXEL
     Indication: OESTROGEN RECEPTOR ASSAY NEGATIVE
  3. DOCETAXEL. [Suspect]
     Active Substance: DOCETAXEL
     Indication: BREAST CANCER STAGE III
  4. EPIRUBICIN [Suspect]
     Active Substance: EPIRUBICIN
     Indication: HER-2 POSITIVE BREAST CANCER
     Dosage: 100 MG/M2,UNK
     Route: 065
  5. EPIRUBICIN [Suspect]
     Active Substance: EPIRUBICIN
     Indication: PROGESTERONE RECEPTOR ASSAY NEGATIVE
  6. EPIRUBICIN [Suspect]
     Active Substance: EPIRUBICIN
     Indication: BREAST CANCER STAGE III
  7. CYCLOPHOSPHAMIDE. [Suspect]
     Active Substance: CYCLOPHOSPHAMIDE
     Indication: HER-2 POSITIVE BREAST CANCER
     Dosage: UNK UNK,UNK
     Route: 065
  8. CYCLOPHOSPHAMIDE. [Suspect]
     Active Substance: CYCLOPHOSPHAMIDE
     Indication: OESTROGEN RECEPTOR ASSAY NEGATIVE
  9. TRASTUZUMAB. [Suspect]
     Active Substance: TRASTUZUMAB
     Indication: PROGESTERONE RECEPTOR ASSAY NEGATIVE
  10. FLUOROURACIL. [Suspect]
     Active Substance: FLUOROURACIL
     Indication: OESTROGEN RECEPTOR ASSAY NEGATIVE
  11. TRASTUZUMAB. [Suspect]
     Active Substance: TRASTUZUMAB
     Indication: OESTROGEN RECEPTOR ASSAY NEGATIVE
     Dosage: RESTARTED AFTER 6 WEEKS
     Route: 065
  12. RAMIPRIL. [Suspect]
     Active Substance: RAMIPRIL
     Indication: CARDIAC FAILURE CONGESTIVE
     Dosage: UNK UNK,UNK
     Route: 065
  13. FLUOROURACIL. [Suspect]
     Active Substance: FLUOROURACIL
     Indication: HER-2 POSITIVE BREAST CANCER
     Dosage: UNK UNK,UNK
     Route: 065
  14. CYCLOPHOSPHAMIDE. [Suspect]
     Active Substance: CYCLOPHOSPHAMIDE
     Indication: BREAST CANCER STAGE III
  15. TRASTUZUMAB. [Suspect]
     Active Substance: TRASTUZUMAB
     Indication: HER-2 POSITIVE BREAST CANCER
     Dosage: UNK UNK,UNK
     Route: 065
  16. CYCLOPHOSPHAMIDE. [Suspect]
     Active Substance: CYCLOPHOSPHAMIDE
     Indication: PROGESTERONE RECEPTOR ASSAY NEGATIVE
  17. DOCETAXEL. [Suspect]
     Active Substance: DOCETAXEL
     Indication: PROGESTERONE RECEPTOR ASSAY NEGATIVE
  18. FLUOROURACIL. [Suspect]
     Active Substance: FLUOROURACIL
     Indication: PROGESTERONE RECEPTOR ASSAY NEGATIVE
  19. FLUOROURACIL. [Suspect]
     Active Substance: FLUOROURACIL
     Indication: BREAST CANCER STAGE III
  20. EPIRUBICIN [Suspect]
     Active Substance: EPIRUBICIN
     Indication: OESTROGEN RECEPTOR ASSAY NEGATIVE
  21. TRASTUZUMAB. [Suspect]
     Active Substance: TRASTUZUMAB
     Indication: BREAST CANCER STAGE III

REACTIONS (4)
  - Ejection fraction decreased [Recovering/Resolving]
  - Troponin I increased [Recovering/Resolving]
  - Drug intolerance [Recovering/Resolving]
  - Cardiac failure congestive [Recovering/Resolving]
